FAERS Safety Report 4552784-X (Version None)
Quarter: 2005Q1

REPORT INFORMATION
  Report Type: 
  Country: None (occurrence: None)
  Receive Date: 20050114
  Receipt Date: 20041215
  Transmission Date: 20050727
  Serious: Yes (Hospitalization)
  Sender: FDA-Public Use
  Company Number: PL-ROCHE-389281

PATIENT
  Age: 61 Year
  Sex: Male
  Weight: 63 kg

DRUGS (10)
  1. INTERFERON ALFA-2A [Suspect]
     Indication: METASTATIC RENAL CELL CARCINOMA
     Route: 058
     Dates: start: 20041115, end: 20041208
  2. INTERFERON ALFA-2A [Suspect]
     Route: 058
     Dates: start: 20041210
  3. BLINDED BEVACIZUMAB [Suspect]
     Indication: METASTATIC RENAL CELL CARCINOMA
     Route: 042
     Dates: start: 20041115, end: 20041213
  4. LOPERAMIDE HCL [Concomitant]
     Dates: start: 20041015
  5. TRAMADOL HCL [Concomitant]
     Dates: start: 20040715, end: 20041208
  6. INSULIN [Concomitant]
     Dates: start: 19920615
  7. CLEMASTIN [Concomitant]
     Dates: start: 20041115
  8. DEXAMETHASONE [Concomitant]
     Dates: start: 20041115
  9. ACETAMINOPHEN [Concomitant]
     Dates: start: 20041115
  10. ENARENAL [Concomitant]
     Dates: start: 19940615

REACTIONS (4)
  - LEG AMPUTATION [None]
  - NECROSIS [None]
  - PROTEINURIA [None]
  - SOFT TISSUE DISORDER [None]
